FAERS Safety Report 24688875 (Version 1)
Quarter: 2024Q4

REPORT INFORMATION
  Report Type: Spontaneous
  Country: US (occurrence: US)
  Receive Date: 20241203
  Receipt Date: 20241203
  Transmission Date: 20250114
  Serious: Yes (Hospitalization)
  Sender: CHEPLAPHARM
  Company Number: US-CHEPLA-2024015107

PATIENT
  Age: 77 Year
  Sex: Female
  Weight: 60 kg

DRUGS (4)
  1. CLONAZEPAM [Suspect]
     Active Substance: CLONAZEPAM
     Indication: Schizophrenia
     Dosage: BID?DAILY DOSE: 2 MILLIGRAM
  2. QUETIAPINE [Suspect]
     Active Substance: QUETIAPINE
     Indication: Schizophrenia
     Dosage: DAILY DOSE: 400 MILLIGRAM
  3. TOPIRAMATE [Suspect]
     Active Substance: TOPIRAMATE
     Indication: Schizophrenia
     Dosage: BID?DAILY DOSE: 50 MILLIGRAM
  4. CITALOPRAM [Suspect]
     Active Substance: CITALOPRAM
     Indication: Schizophrenia
     Dosage: DAILY DOSE: 40 MILLIGRAM

REACTIONS (4)
  - Catatonia [Recovering/Resolving]
  - Atrophy [Unknown]
  - Angiopathy [Unknown]
  - Off label use [Unknown]
